FAERS Safety Report 7491840-3 (Version None)
Quarter: 2011Q2

REPORT INFORMATION
  Report Type: 
  Country: None (occurrence: None)
  Receive Date: 20110519
  Receipt Date: 20110513
  Transmission Date: 20111010
  Serious: Yes (Other)
  Sender: FDA-Public Use
  Company Number: US-BRISTOL-MYERS SQUIBB COMPANY-15745326

PATIENT
  Sex: Female

DRUGS (1)
  1. COUMADIN [Suspect]
     Indication: VENA CAVA FILTER INSERTION
     Dosage: DURATION:20 YEARS

REACTIONS (4)
  - HAEMATURIA [None]
  - THROMBOSIS [None]
  - FATIGUE [None]
  - HEADACHE [None]
